FAERS Safety Report 9264925 (Version 1)
Quarter: 2013Q2

REPORT INFORMATION
  Report Type: Spontaneous
  Country: US (occurrence: None)
  Receive Date: 20130426
  Receipt Date: 20130426
  Transmission Date: 20140414
  Serious: Yes (Life-Threatening)
  Sender: FDA-Public Use
  Company Number: 001519685A

PATIENT
  Age: 41 Year
  Sex: Female

DRUGS (3)
  1. PROACTIV [Suspect]
     Indication: ACNE
     Dosage: ONCE DERMAL
     Dates: start: 20130214
  2. PROACTIV SOLUTION REPAIRING TREATMENT [Suspect]
     Indication: ACNE
     Dosage: ONCE DERMAL
     Dates: start: 20130214
  3. PLAVIX [Concomitant]

REACTIONS (6)
  - Erythema [None]
  - Swelling face [None]
  - Throat tightness [None]
  - Dyspnoea [None]
  - Skin discolouration [None]
  - Pruritus [None]
